FAERS Safety Report 22320806 (Version 2)
Quarter: 2023Q2

REPORT INFORMATION
  Report Type: Spontaneous
  Country: FR (occurrence: FR)
  Receive Date: 20230515
  Receipt Date: 20230629
  Transmission Date: 20230721
  Serious: Yes (Life-Threatening, Hospitalization, Other)
  Sender: FDA-Public Use
  Company Number: None

PATIENT
  Age: 71 Year
  Sex: Female

DRUGS (1)
  1. KEYTRUDA [Suspect]
     Active Substance: PEMBROLIZUMAB
     Indication: Metastatic uterine cancer
     Dosage: UNK
     Route: 042
     Dates: start: 20221201, end: 20230316

REACTIONS (2)
  - Cardiac failure [Not Recovered/Not Resolved]
  - Myocarditis [Unknown]

NARRATIVE: CASE EVENT DATE: 20230410
